FAERS Safety Report 14375150 (Version 1)
Quarter: 2018Q1

REPORT INFORMATION
  Report Type: Spontaneous
  Country: US (occurrence: US)
  Receive Date: 20180110
  Receipt Date: 20180110
  Transmission Date: 20180509
  Serious: Yes (Hospitalization, Other)
  Sender: FDA-Public Use
  Company Number: None

PATIENT
  Age: 32 Year
  Sex: Male
  Weight: 55.9 kg

DRUGS (1)
  1. LIORESAL [Suspect]
     Active Substance: BACLOFEN
     Indication: MUSCLE SPASTICITY
     Dosage: ?          OTHER FREQUENCY:DAY INFUSING;?
     Route: 037
     Dates: start: 20171212, end: 20180104

REACTIONS (6)
  - Muscle spasms [None]
  - Posturing [None]
  - Heart rate increased [None]
  - Condition aggravated [None]
  - Hallucination, visual [None]
  - Pruritus [None]

NARRATIVE: CASE EVENT DATE: 20180104
